FAERS Safety Report 17305685 (Version 1)
Quarter: 2020Q1

REPORT INFORMATION
  Report Type: Spontaneous
  Country: US (occurrence: US)
  Receive Date: 20200123
  Receipt Date: 20200123
  Transmission Date: 20200409
  Serious: Yes (Hospitalization)
  Sender: FDA-Public Use
  Company Number: US-MYLANLABS-2020M1007755

PATIENT
  Age: 13 Year
  Sex: Female

DRUGS (6)
  1. ANAKINRA [Suspect]
     Active Substance: ANAKINRA
     Indication: SARCOMA
  2. CLOFARABINE. [Suspect]
     Active Substance: CLOFARABINE
     Indication: ERDHEIM-CHESTER DISEASE
     Dosage: FOR FIVE DAYS EVERY FOUR WEEKS
     Route: 065
  3. PREDNISONE. [Suspect]
     Active Substance: PREDNISONE
     Indication: ERDHEIM-CHESTER DISEASE
     Dosage: UNK
     Route: 048
  4. ANAKINRA [Suspect]
     Active Substance: ANAKINRA
     Indication: ERDHEIM-CHESTER DISEASE
     Dosage: 100 MILLIGRAM, QD
     Route: 058
  5. CLOFARABINE. [Suspect]
     Active Substance: CLOFARABINE
     Indication: SARCOMA
  6. CLADRIBINE. [Suspect]
     Active Substance: CLADRIBINE
     Indication: ERDHEIM-CHESTER DISEASE
     Route: 042

REACTIONS (1)
  - Drug ineffective [Unknown]
